FAERS Safety Report 5066577-0 (Version None)
Quarter: 2006Q3

REPORT INFORMATION
  Report Type: 
  Country: None (occurrence: None)
  Receive Date: 20060717
  Receipt Date: 20050715
  Transmission Date: 20061208
  Serious: Yes (Other)
  Sender: FDA-Public Use
  Company Number: 2005-07-1127

PATIENT
  Age: 79 Year
  Sex: Male

DRUGS (5)
  1. INTEGRILIN [Suspect]
     Indication: ACUTE CORONARY SYNDROME
     Dosage: INTRAVENOUS
     Route: 042
     Dates: start: 20050713
  2. HEPARIN [Suspect]
     Indication: ACUTE CORONARY SYNDROME
     Dosage: INTRAVENOUS
     Route: 042
     Dates: start: 20050713
  3. ASPIRIN [Concomitant]
  4. SINEMET [Concomitant]
  5. ARTANE [Concomitant]

REACTIONS (2)
  - HAEMATEMESIS [None]
  - PLATELET COUNT DECREASED [None]
